FAERS Safety Report 10637806 (Version 1)
Quarter: 2014Q4

REPORT INFORMATION
  Report Type: Report from Study
  Country: AR (occurrence: AR)
  Receive Date: 20141208
  Receipt Date: 20141208
  Transmission Date: 20150529
  Serious: Yes (Death)
  Sender: FDA-Public Use
  Company Number: AR-ABBVIE-14K-007-1317033-00

PATIENT
  Age: 74 Year
  Sex: Male

DRUGS (1)
  1. HUMIRA [Suspect]
     Active Substance: ADALIMUMAB
     Indication: RHEUMATOID ARTHRITIS
     Route: 058
     Dates: start: 20140812

REACTIONS (3)
  - Myocardial infarction [Fatal]
  - Pain [Fatal]
  - Malaise [Unknown]

NARRATIVE: CASE EVENT DATE: 20141115
